FAERS Safety Report 12429894 (Version 1)
Quarter: 2016Q2

REPORT INFORMATION
  Report Type: Spontaneous
  Country: US (occurrence: US)
  Receive Date: 20160602
  Receipt Date: 20160602
  Transmission Date: 20160815
  Serious: No
  Sender: FDA-Public Use
  Company Number: US-KADMON PHARMACEUTICALS, LLC-KAD201412-001760

PATIENT
  Sex: Male

DRUGS (7)
  1. RIBAVIRIN. [Suspect]
     Active Substance: RIBAVIRIN
     Indication: HEPATITIS C
     Dates: start: 1998
  2. INTERFERON ALFACON-1 [Suspect]
     Active Substance: INTERFERON ALFACON-1
     Dates: start: 1998
  3. SOVALDI [Suspect]
     Active Substance: SOFOSBUVIR
     Indication: HEPATITIS C
  4. RIBAVIRIN. [Suspect]
     Active Substance: RIBAVIRIN
     Dates: start: 1999
  5. INTERFERON ALFACON-1 [Suspect]
     Active Substance: INTERFERON ALFACON-1
     Dates: start: 1998
  6. INTERFERON ALFACON-1 [Suspect]
     Active Substance: INTERFERON ALFACON-1
     Dates: start: 1999
  7. RIBAVIRIN. [Suspect]
     Active Substance: RIBAVIRIN
     Dates: start: 1998

REACTIONS (13)
  - Pain [Unknown]
  - Decreased appetite [Recovering/Resolving]
  - Viral load increased [Unknown]
  - Mood altered [Recovering/Resolving]
  - Lethargy [Unknown]
  - Pain [Recovered/Resolved]
  - Dizziness [Recovering/Resolving]
  - Malaise [Unknown]
  - Asthenia [Recovering/Resolving]
  - Anaemia [Not Recovered/Not Resolved]
  - Feeling abnormal [Recovering/Resolving]
  - Headache [Recovered/Resolved]
  - Volume blood decreased [Unknown]
